FAERS Safety Report 6122278-9 (Version None)
Quarter: 2009Q1

REPORT INFORMATION
  Report Type: 
  Country: None (occurrence: None)
  Receive Date: 20090318
  Receipt Date: 20090310
  Transmission Date: 20090719
  Serious: Yes (Other)
  Sender: FDA-Public Use
  Company Number: US-ALLERGAN-0903239US

PATIENT
  Sex: Male

DRUGS (4)
  1. BRIMONIDINE TARTRATE [Suspect]
     Indication: PAPILLOEDEMA
     Dosage: 1 GTT, TID
     Route: 047
  2. INTERFERON ALFA [Suspect]
     Indication: METASTATIC RENAL CELL CARCINOMA
  3. PREDNISOLONE [Concomitant]
     Dosage: 80 MG, QD
     Route: 048
  4. ACETYLSALICYLIC ACID [Concomitant]
     Dosage: 325 MG, QD

REACTIONS (3)
  - VISUAL ACUITY REDUCED [None]
  - VISUAL ACUITY TESTS ABNORMAL [None]
  - VISUAL FIELD DEFECT [None]
